FAERS Safety Report 10498472 (Version 3)
Quarter: 2015Q1

REPORT INFORMATION
  Report Type: Report from Study
  Country: CA (occurrence: CA)
  Receive Date: 20141006
  Receipt Date: 20150218
  Transmission Date: 20150720
  Serious: Yes (Hospitalization)
  Sender: FDA-Public Use
  Company Number: CA-JNJFOC-20140926092

PATIENT
  Age: 58 Year
  Sex: Female

DRUGS (1)
  1. STELARA [Suspect]
     Active Substance: USTEKINUMAB
     Indication: PSORIASIS
     Route: 058
     Dates: start: 20140606, end: 20140704

REACTIONS (3)
  - Cerebrovascular accident [Unknown]
  - Vasculitis [Unknown]
  - Mental retardation [Unknown]

NARRATIVE: CASE EVENT DATE: 201408
